FAERS Safety Report 5061782-1 (Version None)
Quarter: 2006Q3

REPORT INFORMATION
  Report Type: 
  Country: None (occurrence: None)
  Receive Date: 20060703
  Receipt Date: 20060117
  Transmission Date: 20061208
  Serious: No
  Sender: FDA-Public Use
  Company Number: 2006S1000494

PATIENT
  Age: 48 Year
  Sex: Male
  Weight: 93.8946 kg

DRUGS (9)
  1. CLOZAPINE [Suspect]
     Indication: SCHIZOAFFECTIVE DISORDER
     Dosage: 200 MG;BID;ORAL
     Route: 048
     Dates: start: 20050721
  2. BENZTROPINE MESYLATE [Concomitant]
  3. HALOPERIDOL [Concomitant]
  4. LITHIUM CARBONATE [Concomitant]
  5. DIAZEPAM [Concomitant]
  6. ISOPHANE INSULIN [Concomitant]
  7. ESCITALOPRAM [Concomitant]
  8. LISINOPRIL [Concomitant]
  9. ASPIRIN [Concomitant]

REACTIONS (1)
  - GRANULOCYTOPENIA [None]
